FAERS Safety Report 16723367 (Version 1)
Quarter: 2019Q3

REPORT INFORMATION
  Report Type: Spontaneous
  Country: GB (occurrence: GB)
  Receive Date: 20190821
  Receipt Date: 20190821
  Transmission Date: 20191005
  Serious: Yes (Other)
  Sender: FDA-Public Use
  Company Number: GB-TEVA-2019-GB-1095145

PATIENT
  Sex: Female

DRUGS (2)
  1. CLINDAMYCIN 300 MG [Suspect]
     Active Substance: CLINDAMYCIN PHOSPHATE
     Indication: INFLUENZA
  2. FLUCONAZOLE. [Suspect]
     Active Substance: FLUCONAZOLE
     Indication: PRODUCT USED FOR UNKNOWN INDICATION
     Dates: start: 20190326

REACTIONS (3)
  - C-reactive protein increased [Unknown]
  - Musculoskeletal pain [Unknown]
  - Tendon injury [Unknown]
